FAERS Safety Report 19974163 (Version 1)
Quarter: 2021Q4

REPORT INFORMATION
  Report Type: Other
  Country: US (occurrence: US)
  Receive Date: 20211020
  Receipt Date: 20211020
  Transmission Date: 20220303
  Serious: Yes (Other)
  Sender: FDA-Public Use
  Company Number: US-ROCHE-2934510

PATIENT
  Sex: Male

DRUGS (1)
  1. XELODA [Suspect]
     Active Substance: CAPECITABINE
     Indication: Rectosigmoid cancer
     Dosage: TAKE 3 TABLETS (1500MG) TWICE A DAY TAKE WITH WATER AND WITHIN 30 MINUTES OF THE END OF A MEAL 2 WEE
     Route: 048

REACTIONS (2)
  - Diabetes mellitus [Unknown]
  - Prostate cancer [Unknown]
